FAERS Safety Report 14335668 (Version 1)
Quarter: 2017Q4

REPORT INFORMATION
  Report Type: Spontaneous
  Country: US (occurrence: US)
  Receive Date: 20171229
  Receipt Date: 20171229
  Transmission Date: 20180321
  Serious: Yes (Death, Hospitalization, Other)
  Sender: FDA-Public Use
  Company Number: US-APOTEX-2017AP023333

PATIENT
  Age: 47 Year
  Sex: Male

DRUGS (2)
  1. SERTRALINE [Suspect]
     Active Substance: SERTRALINE HYDROCHLORIDE
     Indication: PRODUCT USED FOR UNKNOWN INDICATION
     Dosage: UNK, INGESTION AND INHALATION
     Route: 048
  2. SERTRALINE [Suspect]
     Active Substance: SERTRALINE HYDROCHLORIDE
     Dosage: UNK, INGESTION AND INHALATION
     Route: 050

REACTIONS (5)
  - Hyperhidrosis [Unknown]
  - Cardiac arrest [Fatal]
  - Unresponsive to stimuli [Fatal]
  - Blister [Unknown]
  - Completed suicide [Fatal]
